FAERS Safety Report 5585240-0 (Version None)
Quarter: 2008Q1

REPORT INFORMATION
  Report Type: 
  Country: None (occurrence: None)
  Receive Date: 20080104
  Receipt Date: 20080104
  Transmission Date: 20080703
  Serious: Yes (Hospitalization)
  Sender: FDA-Public Use
  Company Number: None

PATIENT
  Sex: Male
  Weight: 59.8748 kg

DRUGS (1)
  1. PHENYTOIN [Suspect]
     Indication: EPILEPSY
     Dosage: 600MG QD PO
     Route: 048
     Dates: start: 20070626, end: 20070705

REACTIONS (6)
  - ABDOMINAL DISCOMFORT [None]
  - ANTICONVULSANT DRUG LEVEL ABOVE THERAPEUTIC [None]
  - BLOOD ALBUMIN DECREASED [None]
  - LETHARGY [None]
  - MALAISE [None]
  - PALLOR [None]
